FAERS Safety Report 4329176-1 (Version None)
Quarter: 2004Q2

REPORT INFORMATION
  Report Type: 
  Country: None (occurrence: None)
  Receive Date: 20040401
  Receipt Date: 20030616
  Transmission Date: 20050107
  Serious: Yes (Hospitalization)
  Sender: FDA-Public Use
  Company Number: 200312406FR

PATIENT
  Age: 36 Year
  Sex: Female

DRUGS (19)
  1. CERUBIDINE [Suspect]
     Indication: ACUTE LYMPHOCYTIC LEUKAEMIA
     Route: 042
     Dates: start: 20030329, end: 20030420
  2. KIDROLASE [Suspect]
     Indication: ACUTE LYMPHOCYTIC LEUKAEMIA
     Route: 042
     Dates: start: 20030329, end: 20030420
  3. METHOTREXATE [Suspect]
     Indication: ACUTE LYMPHOCYTIC LEUKAEMIA
     Route: 037
     Dates: start: 20030326, end: 20030415
  4. ARACYTINE [Suspect]
     Indication: ACUTE LYMPHOCYTIC LEUKAEMIA
     Route: 037
     Dates: start: 20030328, end: 20030415
  5. ENDOXAN ASTA [Suspect]
     Indication: ACUTE LYMPHOCYTIC LEUKAEMIA
     Route: 042
     Dates: start: 20030329, end: 20030420
  6. ONCOVIN [Suspect]
     Indication: ACUTE LYMPHOCYTIC LEUKAEMIA
     Route: 042
     Dates: start: 20030329, end: 20030420
  7. DEPO-MEDROL [Concomitant]
  8. FASTURTEC [Concomitant]
     Dates: start: 20030321
  9. TAZOCILLINE [Concomitant]
     Dates: end: 20030428
  10. TAVANIC [Concomitant]
     Dates: start: 20030425
  11. TRIFLUCAN [Concomitant]
     Dates: start: 20030322, end: 20030429
  12. FUROSEMIDE [Concomitant]
     Dates: start: 20030326, end: 20030510
  13. XANAX [Concomitant]
  14. PREDNISONE [Concomitant]
  15. DUPHALAC [Concomitant]
  16. MOPRAL [Concomitant]
  17. TOPALGIC [Concomitant]
  18. ZOPHREN [Concomitant]
  19. FUNGIZONE [Concomitant]
     Dates: start: 20030424, end: 20030428

REACTIONS (6)
  - BLOOD IRON INCREASED [None]
  - CHOLELITHIASIS [None]
  - HEPATIC FIBROSIS [None]
  - HEPATIC STEATOSIS [None]
  - HEPATITIS CHOLESTATIC [None]
  - HEPATOMEGALY [None]
